FAERS Safety Report 12258809 (Version 1)
Quarter: 2016Q2

REPORT INFORMATION
  Report Type: Spontaneous
  Country: US (occurrence: US)
  Receive Date: 20160412
  Receipt Date: 20160412
  Transmission Date: 20160815
  Serious: No
  Sender: FDA-Public Use
  Company Number: US-SA-2015SA060754

PATIENT

DRUGS (4)
  1. ALLEGRA [Suspect]
     Active Substance: FEXOFENADINE HYDROCHLORIDE
     Route: 048
  2. CLARITIN [Suspect]
     Active Substance: LORATADINE
     Route: 065
  3. SUDAFED [Suspect]
     Active Substance: PSEUDOEPHEDRINE HYDROCHLORIDE
     Route: 065
  4. MUCINEX [Suspect]
     Active Substance: GUAIFENESIN
     Route: 065

REACTIONS (1)
  - Drug ineffective [Unknown]
